FAERS Safety Report 16544447 (Version 1)
Quarter: 2019Q3

REPORT INFORMATION
  Report Type: Spontaneous
  Country: US (occurrence: US)
  Receive Date: 20190709
  Receipt Date: 20190709
  Transmission Date: 20191004
  Serious: No
  Sender: FDA-Public Use
  Company Number: US-PFIZER INC-2019287979

PATIENT
  Age: 64 Year
  Sex: Female

DRUGS (1)
  1. IBRANCE [Suspect]
     Active Substance: PALBOCICLIB
     Indication: BREAST CANCER FEMALE
     Dosage: 125 MG, CYCLIC (TAKE 1 CAPSULE (125MG) BY MOUTH ONCE DAILY WITH FOOD FOR 21 DAYS, FOLLOWED BY 7 DAY)
     Route: 048
     Dates: start: 201906

REACTIONS (1)
  - Nausea [Unknown]
